FAERS Safety Report 21992418 (Version 1)
Quarter: 2023Q1

REPORT INFORMATION
  Report Type: Spontaneous
  Country: US (occurrence: US)
  Receive Date: 20230215
  Receipt Date: 20230215
  Transmission Date: 20230418
  Serious: Yes (Hospitalization)
  Sender: FDA-Public Use
  Company Number: US-STRIDES ARCOLAB LIMITED-2022SP015902

PATIENT
  Age: 23 Year
  Sex: Female

DRUGS (6)
  1. ETOPOSIDE [Suspect]
     Active Substance: ETOPOSIDE
     Indication: Ovarian dysgerminoma stage unspecified
     Dosage: 120 MILLIGRAM/SQ. METER, CYCLICAL (FOUR CYCLES)
     Route: 042
     Dates: start: 2018
  2. BLEOMYCIN [Suspect]
     Active Substance: BLEOMYCIN SULFATE
     Indication: Ovarian dysgerminoma stage unspecified
     Dosage: 15 UNITS, CYCLICAL PER WEEK (ON DAYS 1, 8, AND 15) (FOUR CYCLES)
     Route: 042
     Dates: start: 2018
  3. CISPLATIN [Suspect]
     Active Substance: CISPLATIN
     Indication: Ovarian dysgerminoma stage unspecified
     Dosage: 40 MILLIGRAM/SQ. METER, CYCLICAL (ON DAYS 1-5) (FOUR CYCLES)
     Route: 042
     Dates: start: 2018
  4. BACTRIM [Concomitant]
     Active Substance: SULFAMETHOXAZOLE\TRIMETHOPRIM
     Indication: Cough
     Dosage: UNK
     Route: 065
     Dates: start: 2018
  5. BACTRIM [Concomitant]
     Active Substance: SULFAMETHOXAZOLE\TRIMETHOPRIM
     Indication: Skin disorder
  6. BACTRIM [Concomitant]
     Active Substance: SULFAMETHOXAZOLE\TRIMETHOPRIM
     Indication: Cellulitis

REACTIONS (2)
  - Pancytopenia [Recovered/Resolved]
  - Off label use [Unknown]
